FAERS Safety Report 9413789 (Version 3)
Quarter: 2013Q3

REPORT INFORMATION
  Report Type: Spontaneous
  Country: SE (occurrence: SE)
  Receive Date: 20130723
  Receipt Date: 20130819
  Transmission Date: 20140515
  Serious: Yes (Hospitalization, Other)
  Sender: FDA-Public Use
  Company Number: PHHY2013SE077909

PATIENT
  Sex: Female

DRUGS (4)
  1. ACLASTA [Suspect]
     Indication: OSTEOPOROSIS POSTMENOPAUSAL
     Dosage: 5 MG, UNK
     Route: 042
     Dates: start: 20130220
  2. TROMBYL [Concomitant]
  3. NORMORIX [Concomitant]
     Dosage: UNK UKN, UNK
  4. LEVAXIN [Concomitant]
     Dosage: UNK UKN, UNK

REACTIONS (11)
  - Musculoskeletal chest pain [Recovered/Resolved]
  - Tooth injury [Unknown]
  - Pulpitis dental [Unknown]
  - Toothache [Recovering/Resolving]
  - Influenza like illness [Not Recovered/Not Resolved]
  - Pain in extremity [Unknown]
  - Fatigue [Not Recovered/Not Resolved]
  - Headache [Unknown]
  - Pain in jaw [Recovering/Resolving]
  - Decreased interest [Unknown]
  - Abdominal discomfort [Unknown]
